FAERS Safety Report 14038725 (Version 1)
Quarter: 2017Q4

REPORT INFORMATION
  Report Type: Spontaneous
  Country: US (occurrence: US)
  Receive Date: 20171004
  Receipt Date: 20171004
  Transmission Date: 20180321
  Serious: No
  Sender: FDA-Public Use
  Company Number: US-INDIVIOR LIMITED-INDV-096877-2016

PATIENT
  Age: 39 Year
  Sex: Female

DRUGS (3)
  1. SUBOXONE [Suspect]
     Active Substance: BUPRENORPHINE HYDROCHLORIDE\NALOXONE HYDROCHLORIDE
     Indication: DRUG USE DISORDER
     Dosage: SOMETIMES TAKES 24 MG, DAILY
     Route: 065
     Dates: start: 201403
  2. KLONOPIN [Concomitant]
     Active Substance: CLONAZEPAM
     Indication: ANXIETY
     Dosage: UNKNOWN, PRN
     Route: 065
  3. SUBOXONE [Suspect]
     Active Substance: BUPRENORPHINE HYDROCHLORIDE\NALOXONE HYDROCHLORIDE
     Dosage: SOMETIMES TAKES 8 MG, THREE TIMES A DAY
     Route: 065
     Dates: start: 201403

REACTIONS (13)
  - Rhinorrhoea [Unknown]
  - Pyrexia [Unknown]
  - Affect lability [Unknown]
  - Drug withdrawal syndrome [Not Recovered/Not Resolved]
  - Insomnia [Unknown]
  - Lacrimation increased [Unknown]
  - Malaise [Unknown]
  - Intentional product misuse [Unknown]
  - Diarrhoea [Unknown]
  - Decreased appetite [Unknown]
  - Drug ineffective [Unknown]
  - Depression [Unknown]
  - Formication [Unknown]

NARRATIVE: CASE EVENT DATE: 201403
